FAERS Safety Report 5190350-6 (Version None)
Quarter: 2006Q4

REPORT INFORMATION
  Report Type: 
  Country: None (occurrence: None)
  Receive Date: 20061222
  Receipt Date: 20060615
  Transmission Date: 20070319
  Serious: No
  Sender: FDA-Public Use
  Company Number: US-AMGEN-US183116

PATIENT
  Sex: Female

DRUGS (16)
  1. ARANESP [Suspect]
     Indication: ANAEMIA
     Route: 065
     Dates: start: 20060525
  2. PLAQUENIL [Concomitant]
  3. PREDNISONE TAB [Concomitant]
  4. REMICADE [Concomitant]
     Dates: end: 20060516
  5. BACTRIM [Concomitant]
  6. NEXIUM [Concomitant]
  7. VICODIN [Concomitant]
     Dates: end: 20060101
  8. VITAMIN D [Concomitant]
  9. LANTUS [Concomitant]
  10. BENICAR [Concomitant]
  11. XOPENEX [Concomitant]
  12. ATROVENT [Concomitant]
  13. MUCOMYST [Concomitant]
  14. BIAXIN [Concomitant]
  15. VITAMIN CAP [Concomitant]
  16. METHOTREXATE [Concomitant]

REACTIONS (4)
  - ASTHENIA [None]
  - BONE PAIN [None]
  - HAEMOGLOBIN DECREASED [None]
  - PARAESTHESIA [None]
